FAERS Safety Report 16691434 (Version 1)
Quarter: 2019Q3

REPORT INFORMATION
  Report Type: Spontaneous
  Country: US (occurrence: US)
  Receive Date: 20190624
  Receipt Date: 20190624
  Transmission Date: 20191004
  Serious: No
  Sender: FDA-Public Use
  Company Number: None

PATIENT
  Age: 29 Year
  Sex: Male
  Weight: 81.65 kg

DRUGS (6)
  1. SERTRALINE [Concomitant]
     Active Substance: SERTRALINE HYDROCHLORIDE
  2. LORATADINE. [Concomitant]
     Active Substance: LORATADINE
  3. BUPROPION XL 300MG [Suspect]
     Active Substance: BUPROPION
     Indication: BIPOLAR DISORDER
     Dosage: ?          QUANTITY:300 MG MILLIGRAM(S);?
     Route: 048
     Dates: start: 20190611, end: 20190614
  4. BUPROPION. [Concomitant]
     Active Substance: BUPROPION
  5. LAMOTRIGINE. [Concomitant]
     Active Substance: LAMOTRIGINE
  6. FIORINAL [Concomitant]
     Active Substance: ASPIRIN\BUTALBITAL\CAFFEINE

REACTIONS (4)
  - Product substitution issue [None]
  - Treatment failure [None]
  - Condition aggravated [None]
  - Depression [None]

NARRATIVE: CASE EVENT DATE: 20190611
